FAERS Safety Report 9998775 (Version 2)
Quarter: 2015Q3

REPORT INFORMATION
  Report Type: Spontaneous
  Country: US (occurrence: US)
  Receive Date: 20140312
  Receipt Date: 20150706
  Transmission Date: 20151125
  Serious: No
  Sender: FDA-Public Use
  Company Number: US-BIOGENIDEC-2014BI019776

PATIENT
  Age: 59 Year
  Sex: Female

DRUGS (13)
  1. FLEXERIL [Concomitant]
     Active Substance: CYCLOBENZAPRINE HYDROCHLORIDE
  2. PROMETRIUM [Concomitant]
     Active Substance: PROGESTERONE
  3. POTASSIUM [Concomitant]
     Active Substance: POTASSIUM
  4. TECFIDERA [Suspect]
     Active Substance: DIMETHYL FUMARATE
     Indication: MULTIPLE SCLEROSIS
     Route: 048
     Dates: start: 20140123
  5. BACLOFEN. [Concomitant]
     Active Substance: BACLOFEN
  6. MELATONIN [Concomitant]
     Active Substance: MELATONIN
  7. PROPRANOLOL HCI [Concomitant]
  8. VIVELLE-DOT [Concomitant]
     Active Substance: ESTRADIOL
  9. BUSPIRONE HCI [Concomitant]
  10. NUVIGIL [Concomitant]
     Active Substance: ARMODAFINIL
  11. HYDROCHLOROTHIAZIDE. [Concomitant]
     Active Substance: HYDROCHLOROTHIAZIDE
  12. NEUROTIN [Concomitant]
     Active Substance: GABAPENTIN
  13. KLONOPIN [Concomitant]
     Active Substance: CLONAZEPAM

REACTIONS (3)
  - Muscle spasms [Unknown]
  - Fatigue [Not Recovered/Not Resolved]
  - Abdominal discomfort [Unknown]
